FAERS Safety Report 9514363 (Version 3)
Quarter: 2013Q4

REPORT INFORMATION
  Report Type: Spontaneous
  Country: JP (occurrence: JP)
  Receive Date: 20130911
  Receipt Date: 20131101
  Transmission Date: 20140711
  Serious: Yes (Death, Hospitalization)
  Sender: FDA-Public Use
  Company Number: JP-AMGEN-JPNSP2013062887

PATIENT
  Age: 70 Year
  Sex: Male
  Weight: 50 kg

DRUGS (6)
  1. VECTIBIX [Suspect]
     Indication: COLON CANCER
     Dosage: 6 MG/KG, QWK
     Route: 041
     Dates: start: 20130826, end: 20130826
  2. IRINOTECAN HYDROCHLORIDE [Suspect]
     Indication: COLON CANCER
     Dosage: 120 MG, Q2WK
     Route: 041
     Dates: start: 20130826, end: 20130826
  3. MAGMITT [Concomitant]
     Indication: PROPHYLAXIS
     Dosage: 500 MG, UNK
     Route: 048
     Dates: start: 20130826, end: 20130826
  4. POLARAMINE [Concomitant]
     Indication: PROPHYLAXIS
     Dosage: 5 MG, QD
     Route: 041
     Dates: start: 20130826, end: 20130826
  5. GRANISETRON                        /01178102/ [Concomitant]
     Indication: PROPHYLAXIS
     Dosage: 3 MG, QD
     Route: 041
     Dates: start: 20130826, end: 20130826
  6. DECADRON                           /00016002/ [Concomitant]
     Indication: PROPHYLAXIS
     Dosage: 3 MG, QD
     Route: 041
     Dates: start: 20130826, end: 20130826

REACTIONS (4)
  - Interstitial lung disease [Fatal]
  - Diarrhoea [Recovered/Resolved]
  - Vomiting [Unknown]
  - Liver disorder [Unknown]
